FAERS Safety Report 6603070-5 (Version None)
Quarter: 2010Q1

REPORT INFORMATION
  Report Type: 
  Country: None (occurrence: None)
  Receive Date: 20100226
  Receipt Date: 20100218
  Transmission Date: 20100710
  Serious: Yes (Hospitalization)
  Sender: FDA-Public Use
  Company Number: PHHO2010GB02732

PATIENT
  Sex: Female

DRUGS (10)
  1. AFINITOR [Suspect]
     Indication: ACUTE MYELOID LEUKAEMIA
     Dosage: UNK
     Route: 048
     Dates: start: 20090825
  2. DAUNORUBICIN HCL [Concomitant]
  3. ARA-C [Concomitant]
  4. MYLOTARG [Concomitant]
  5. ETOPOSIDE [Concomitant]
  6. TIOTROPIUM [Concomitant]
  7. NICOTINELL TTS [Concomitant]
  8. SERETIDE [Concomitant]
  9. DOXYCYCLINE [Concomitant]
  10. AMILORIDE HYDROCHLORIDE [Concomitant]

REACTIONS (7)
  - DEHYDRATION [None]
  - DYSPEPSIA [None]
  - HERPES VIRUS INFECTION [None]
  - NAUSEA [None]
  - ORAL HERPES [None]
  - RENAL IMPAIRMENT [None]
  - VOMITING [None]
